FAERS Safety Report 6784755-7 (Version None)
Quarter: 2010Q2

REPORT INFORMATION
  Report Type: 
  Country: None (occurrence: None)
  Receive Date: 20100622
  Receipt Date: 20091203
  Transmission Date: 20101027
  Serious: No
  Sender: FDA-Public Use
  Company Number: US-ALLERGAN-0916686US

PATIENT
  Age: 85 Year
  Sex: Female

DRUGS (7)
  1. SANCTURA [Suspect]
     Indication: HYPERTONIC BLADDER
     Dosage: UNK
     Route: 048
     Dates: start: 20091122, end: 20091130
  2. PRAVASTATIN [Concomitant]
     Indication: BLOOD CHOLESTEROL INCREASED
  3. SYNTHROID [Concomitant]
  4. ZANTAC [Concomitant]
     Indication: GASTROOESOPHAGEAL REFLUX DISEASE
  5. CEFUROXIME [Concomitant]
  6. AUGMENTIN '125' [Concomitant]
     Indication: SINUSITIS
     Dosage: UNK
  7. LAMISIL [Concomitant]
     Indication: FUNGAL INFECTION

REACTIONS (1)
  - URINARY INCONTINENCE [None]
